FAERS Safety Report 24312053 (Version 1)
Quarter: 2024Q3

REPORT INFORMATION
  Report Type: Spontaneous
  Country: US (occurrence: US)
  Receive Date: 20240912
  Receipt Date: 20240912
  Transmission Date: 20241017
  Serious: Yes (Other)
  Sender: CB FLEET
  Company Number: US-PRESTIGE-202409-US-002906

PATIENT
  Age: 72 Year
  Sex: Female

DRUGS (1)
  1. CLEAR EYES TRIPLE ACTION [Suspect]
     Active Substance: POLYVINYL ALCOHOL\POVIDONE\TETRAHYDROZOLINE HYDROCHLORIDE
     Indication: Product used for unknown indication
     Dosage: USED IT FOR 3 DAYS
     Route: 047

REACTIONS (1)
  - Eye infection [Unknown]
